FAERS Safety Report 8124809-6 (Version None)
Quarter: 2012Q1

REPORT INFORMATION
  Report Type: 
  Country: None (occurrence: None)
  Receive Date: 20120209
  Receipt Date: 20120201
  Transmission Date: 20120608
  Serious: Yes (Other)
  Sender: FDA-Public Use
  Company Number: JP-JNJFOC-20120105631

PATIENT
  Age: 68 Year
  Sex: Female

DRUGS (15)
  1. VOLTAREN [Concomitant]
     Route: 054
  2. TRAMADOL HYDROCHLORIDE/ACETAMINOPHEN [Suspect]
     Dosage: 1 PER DAY
     Route: 048
     Dates: start: 20111001
  3. LANSOPRAZOLE [Concomitant]
     Route: 065
  4. ASPIRIN [Concomitant]
     Route: 048
  5. PREMARIN [Concomitant]
     Route: 065
  6. FLUVOXAMINE MALEATE [Suspect]
     Indication: PRODUCT USED FOR UNKNOWN INDICATION
     Route: 048
  7. TRAMADOL HYDROCHLORIDE/ACETAMINOPHEN [Suspect]
     Indication: PAIN
     Route: 048
  8. TRAMADOL HYDROCHLORIDE/ACETAMINOPHEN [Suspect]
     Route: 048
     Dates: start: 20111025
  9. CONIEL [Concomitant]
     Route: 048
  10. CANDESARTAN CILEXETIL [Concomitant]
     Route: 048
  11. RESMIT [Concomitant]
     Route: 048
  12. DOGMATYL [Concomitant]
     Route: 065
  13. CRESTOR [Concomitant]
     Route: 048
  14. PREDNISOLONE [Concomitant]
     Route: 065
  15. UNKNOWN MEDICATION [Concomitant]
     Route: 065

REACTIONS (5)
  - WITHDRAWAL SYNDROME [None]
  - DELIRIUM [None]
  - SEROTONIN SYNDROME [None]
  - ABNORMAL BEHAVIOUR [None]
  - INADEQUATE ANALGESIA [None]
